FAERS Safety Report 6602669-X (Version None)
Quarter: 2010Q1

REPORT INFORMATION
  Report Type: 
  Country: None (occurrence: None)
  Receive Date: 20100218
  Receipt Date: 20100211
  Transmission Date: 20100710
  Serious: Yes (Hospitalization, Other)
  Sender: FDA-Public Use
  Company Number: 2009-198554-NL

PATIENT
  Age: 31 Year
  Sex: Female
  Weight: 90.7194 kg

DRUGS (12)
  1. NUVARING [Suspect]
     Indication: CONTRACEPTION
     Dosage: 1 DF; Q3W; VAG
     Route: 067
     Dates: start: 20040101, end: 20080303
  2. ALLEGRA [Concomitant]
  3. GYNAZOLE [Concomitant]
  4. CLINDESSE [Concomitant]
  5. OXYCODONE HCL AND ACETAMINOPHEN [Concomitant]
  6. PROMETHAZINE [Concomitant]
  7. GLIMEPIRIDE [Concomitant]
  8. FEXOFENADINE [Concomitant]
  9. FLOTICASONE [Concomitant]
  10. XOPENEX [Concomitant]
  11. METRONIDAZOLE [Concomitant]
  12. ANAPROX DS [Concomitant]

REACTIONS (34)
  - ANTITHROMBIN III DEFICIENCY [None]
  - BACTERAEMIA [None]
  - BLOOD CHOLESTEROL INCREASED [None]
  - BRONCHIAL HYPERREACTIVITY [None]
  - CERVICAL INCOMPETENCE [None]
  - DEEP VEIN THROMBOSIS [None]
  - DIZZINESS [None]
  - DRUG EXPOSURE DURING PREGNANCY [None]
  - FACTOR III DEFICIENCY [None]
  - FACTOR V DEFICIENCY [None]
  - GLYCOSYLATED HAEMOGLOBIN INCREASED [None]
  - HAEMODYNAMIC INSTABILITY [None]
  - HYPERCHOLESTEROLAEMIA [None]
  - HYPERTENSION [None]
  - INCISION SITE INFECTION [None]
  - INFUSION SITE PHLEBITIS [None]
  - INTERNATIONAL NORMALISED RATIO INCREASED [None]
  - INTRA-UTERINE DEATH [None]
  - LEFT VENTRICULAR HYPERTROPHY [None]
  - LOSS OF CONSCIOUSNESS [None]
  - MYOMECTOMY [None]
  - PALPITATIONS [None]
  - POST PROCEDURAL COMPLICATION [None]
  - PREGNANCY [None]
  - PREMATURE RUPTURE OF MEMBRANES [None]
  - PROTEIN C DEFICIENCY [None]
  - PULMONARY EMBOLISM [None]
  - RETAINED PLACENTA OR MEMBRANES [None]
  - SEASONAL ALLERGY [None]
  - STAPHYLOCOCCAL INFECTION [None]
  - STAPHYLOCOCCAL SEPSIS [None]
  - VAGINITIS BACTERIAL [None]
  - VOMITING [None]
  - WOUND SEPSIS [None]
